FAERS Safety Report 4356427-X (Version None)
Quarter: 2004Q2

REPORT INFORMATION
  Report Type: 
  Country: None (occurrence: None)
  Receive Date: 20040510
  Receipt Date: 20040510
  Transmission Date: 20050107
  Serious: Yes (Hospitalization)
  Sender: FDA-Public Use
  Company Number: None

PATIENT
  Age: 71 Year
  Sex: Female

DRUGS (1)
  1. BENICAR HCT [Suspect]
     Indication: HYPERTENSION
     Dosage: ONE DOSE PO QD
     Route: 048
     Dates: start: 20040201, end: 20040301

REACTIONS (4)
  - CHEST PAIN [None]
  - FEELING ABNORMAL [None]
  - NECK PAIN [None]
  - PAIN IN EXTREMITY [None]
